FAERS Safety Report 4609503-8 (Version None)
Quarter: 2005Q1

REPORT INFORMATION
  Report Type: 
  Country: None (occurrence: None)
  Receive Date: 20050314
  Receipt Date: 20050314
  Transmission Date: 20050727
  Serious: Yes (Hospitalization)
  Sender: FDA-Public Use
  Company Number: None

PATIENT
  Age: 52 Year
  Sex: Male

DRUGS (3)
  1. CYTARABINE [Suspect]
     Indication: NEOPLASM MALIGNANT
     Dosage: 3400 MG
  2. ETOPOSIDE [Suspect]
     Indication: NEOPLASM MALIGNANT
     Dosage: 68 MG
  3. CISPLATIN [Suspect]
     Dosage: 43 MG

REACTIONS (1)
  - NEUTROPENIA [None]
